FAERS Safety Report 8962709 (Version 1)
Quarter: 2012Q4

REPORT INFORMATION
  Report Type: 
  Country: US (occurrence: US)
  Receive Date: 20121214
  Receipt Date: 20121214
  Transmission Date: 20130627
  Serious: Yes (Hospitalization)
  Sender: FDA-Public Use
  Company Number: US-VERTEX PHARMACEUTICALS INC.-2012-026070

PATIENT
  Sex: Female
  Weight: 66 kg

DRUGS (24)
  1. KALYDECO [Suspect]
     Indication: CYSTIC FIBROSIS
     Dosage: 150 mg, bid
     Route: 048
  2. LORAZEPAM [Concomitant]
     Dosage: 1 mg, UNK
  3. CREON [Concomitant]
     Dosage: 24000 IU, UNK
  4. CELEXA [Concomitant]
     Dosage: 10 mg, UNK
  5. SINGULAIR [Concomitant]
     Dosage: 10 mg, UNK
  6. ACTIGALL [Concomitant]
     Dosage: 300 mg, UNK
  7. NEXIUM [Concomitant]
     Dosage: 20 mg, UNK
  8. MULTIVITAMIN [Concomitant]
  9. FISH OIL [Concomitant]
  10. COQ-10 [Concomitant]
     Dosage: 100 mg, UNK
  11. B COMPLEX [Concomitant]
  12. ZYRTEC [Concomitant]
     Dosage: 10 mg, UNK
  13. PREDNISONE [Concomitant]
     Dosage: 10 mg, UNK
  14. NOVOLOG [Concomitant]
  15. NECON [Concomitant]
  16. PROAIR HFA [Concomitant]
     Route: 055
  17. CAYSTON [Concomitant]
     Dosage: 75 mg, UNK
     Route: 055
  18. DOXYCYCLINE [Concomitant]
     Dosage: 150 mg, UNK
  19. VITAMIN D [Concomitant]
     Dosage: 1000 IU, UNK
  20. IRON [Concomitant]
     Dosage: 18 mg, UNK
  21. VITAMIN K [Concomitant]
     Dosage: 100 ?g, UNK
  22. SOURCECF [Concomitant]
  23. DUONEB [Concomitant]
  24. AZTREONAM [Concomitant]
     Dosage: 1 g, UNK

REACTIONS (1)
  - Infective pulmonary exacerbation of cystic fibrosis [Unknown]
